FAERS Safety Report 6950368-7 (Version None)
Quarter: 2010Q3

REPORT INFORMATION
  Report Type: 
  Country: None (occurrence: None)
  Receive Date: 20100828
  Receipt Date: 20100208
  Transmission Date: 20110219
  Serious: No
  Sender: FDA-Public Use
  Company Number: US-ABBOTT-10P-163-0624828-00

PATIENT
  Sex: Female
  Weight: 52.21 kg

DRUGS (6)
  1. NIASPAN [Suspect]
     Indication: PRODUCT USED FOR UNKNOWN INDICATION
     Dosage: NIGHTLY
     Route: 048
     Dates: start: 20091101
  2. NIASPAN [Suspect]
     Dosage: NIGHTLY
     Route: 048
  3. COUMADIN [Concomitant]
     Indication: PRODUCT USED FOR UNKNOWN INDICATION
     Route: 048
  4. ZETIA [Concomitant]
     Indication: PRODUCT USED FOR UNKNOWN INDICATION
     Route: 048
  5. STATIN [Concomitant]
     Indication: PRODUCT USED FOR UNKNOWN INDICATION
  6. ANTIHYPERTENSIVES [Concomitant]
     Indication: BLOOD PRESSURE

REACTIONS (5)
  - BLOOD DISORDER [None]
  - FEELING HOT [None]
  - FLUSHING [None]
  - PARAESTHESIA [None]
  - PRURITUS [None]
